FAERS Safety Report 8997955 (Version 2)
Quarter: 2013Q2

REPORT INFORMATION
  Report Type: Report from Study
  Country: US (occurrence: US)
  Receive Date: 20130104
  Receipt Date: 20130422
  Transmission Date: 20140414
  Serious: Yes (Hospitalization)
  Sender: FDA-Public Use
  Company Number: US-VERTEX PHARMACEUTICALS INC.-2013-000114

PATIENT
  Age: 38 Year
  Sex: Female

DRUGS (6)
  1. VX-770 [Suspect]
     Indication: CYSTIC FIBROSIS
     Dosage: 150 MG, BID
     Route: 048
     Dates: start: 20120306
  2. PULMICORT [Concomitant]
     Indication: CYSTIC FIBROSIS
     Dosage: 180 ?G, 2 PUFFS, BID
  3. PULMOZYME [Concomitant]
     Dosage: 1 IU, QD
     Route: 055
  4. FLONASE [Concomitant]
     Dosage: 2 SPRAYS EACH NOSTRIL DAILY
  5. HYPERTONIC SALINE SOLUTION [Concomitant]
     Dosage: UNK, BID
     Route: 055
  6. PROVENTIL [Concomitant]
     Dosage: UNK, QID

REACTIONS (1)
  - Infective pulmonary exacerbation of cystic fibrosis [Recovered/Resolved]
